FAERS Safety Report 12428153 (Version 1)
Quarter: 2016Q2

REPORT INFORMATION
  Report Type: Report from Study
  Country: GB (occurrence: GB)
  Receive Date: 20160602
  Receipt Date: 20160602
  Transmission Date: 20160815
  Serious: No
  Sender: FDA-Public Use
  Company Number: GB-AMGEN-GBRSL2016069861

PATIENT
  Age: 71 Year
  Sex: Female

DRUGS (1)
  1. PROLIA [Suspect]
     Active Substance: DENOSUMAB
     Indication: PRODUCT USED FOR UNKNOWN INDICATION
     Dosage: UNK
     Route: 065
     Dates: start: 201511

REACTIONS (3)
  - Pain in jaw [Recovering/Resolving]
  - Upper respiratory tract infection [Recovered/Resolved]
  - Toothache [Recovering/Resolving]

NARRATIVE: CASE EVENT DATE: 2015
